FAERS Safety Report 25062103 (Version 1)
Quarter: 2025Q1

REPORT INFORMATION
  Report Type: Spontaneous
  Country: CA (occurrence: CA)
  Receive Date: 20250311
  Receipt Date: 20250311
  Transmission Date: 20250409
  Serious: Yes (Hospitalization)
  Sender: ROCHE
  Company Number: CA-002147023-NVSC2025CA037157

PATIENT
  Age: 32 Year
  Sex: Male

DRUGS (1)
  1. OMALIZUMAB [Suspect]
     Active Substance: OMALIZUMAB
     Indication: Asthma
     Dosage: 300 MG, Q4W
     Route: 050

REACTIONS (3)
  - Alopecia [Recovering/Resolving]
  - Back pain [Recovering/Resolving]
  - Kidney infection [Recovering/Resolving]
